FAERS Safety Report 23014272 (Version 2)
Quarter: 2023Q4

REPORT INFORMATION
  Report Type: Report from Study
  Country: US (occurrence: US)
  Receive Date: 20231002
  Receipt Date: 20231103
  Transmission Date: 20240110
  Serious: Yes (Hospitalization, Other)
  Sender: FDA-Public Use
  Company Number: US-AMGEN-USASL2023033330

PATIENT
  Age: 54 Year
  Sex: Male

DRUGS (1)
  1. OTEZLA [Suspect]
     Active Substance: APREMILAST
     Indication: Psoriasis
     Dosage: UNK (28 DAY STARTER PACK)
     Route: 065
     Dates: start: 20220729, end: 20230129

REACTIONS (6)
  - Liver injury [Unknown]
  - Blindness [Unknown]
  - Haemorrhage [Unknown]
  - Renal disorder [Unknown]
  - Feeling jittery [Unknown]
  - Weight decreased [Unknown]

NARRATIVE: CASE EVENT DATE: 20220101
